FAERS Safety Report 24382960 (Version 1)
Quarter: 2024Q4

REPORT INFORMATION
  Report Type: Spontaneous
  Country: US (occurrence: US)
  Receive Date: 20241001
  Receipt Date: 20241001
  Transmission Date: 20250115
  Serious: Yes (Other)
  Sender: LEO PHARM
  Company Number: US-LEO Pharma-373763

PATIENT
  Age: 29 Year
  Sex: Male

DRUGS (2)
  1. ADBRY [Suspect]
     Active Substance: TRALOKINUMAB-LDRM
     Indication: Dermatitis atopic
     Dosage: THEN INJECT 2 SYRINGES UNDER THE SKIN EVERY 14 DAYS STARTING ON DAY 15
     Route: 058
  2. ADBRY [Suspect]
     Active Substance: TRALOKINUMAB-LDRM
     Indication: Dermatitis atopic
     Dosage: INJECT 4 SYRINGES UNDER THE SKIN ON DAY 1
     Route: 058
     Dates: start: 202408

REACTIONS (2)
  - Angioedema [Unknown]
  - Poor quality sleep [Unknown]
